FAERS Safety Report 4991020-7 (Version None)
Quarter: 2006Q2

REPORT INFORMATION
  Report Type: 
  Country: None (occurrence: None)
  Receive Date: 20060503
  Receipt Date: 20060406
  Transmission Date: 20061013
  Serious: Yes (Hospitalization, Other)
  Sender: FDA-Public Use
  Company Number: US-MERCK-0604USA00930

PATIENT
  Age: 71 Year
  Sex: Female
  Weight: 97 kg

DRUGS (4)
  1. VIOXX [Suspect]
     Indication: ARTHRITIS
     Route: 048
     Dates: start: 20010101, end: 20040101
  2. PROZAC [Concomitant]
     Indication: DEPRESSION
     Route: 048
  3. MOTRIN [Concomitant]
     Route: 065
  4. ZANAFLEX [Concomitant]
     Route: 048

REACTIONS (9)
  - ATRIAL FIBRILLATION [None]
  - CHRONIC OBSTRUCTIVE PULMONARY DISEASE [None]
  - CORONARY ARTERY DISEASE [None]
  - HYPERTENSION [None]
  - MYOCARDIAL INFARCTION [None]
  - NIGHT SWEATS [None]
  - OSTEOARTHRITIS [None]
  - PAIN [None]
  - ULCER HAEMORRHAGE [None]
